FAERS Safety Report 11955103 (Version 1)
Quarter: 2016Q1

REPORT INFORMATION
  Report Type: Report from Study
  Country: US (occurrence: US)
  Receive Date: 20160125
  Receipt Date: 20160125
  Transmission Date: 20160526
  Serious: Yes (Hospitalization)
  Sender: FDA-Public Use
  Company Number: US-ABBVIE-15K-163-1350272-00

PATIENT
  Age: 58 Year
  Sex: Male
  Weight: 92.62 kg

DRUGS (2)
  1. HUMIRA [Suspect]
     Active Substance: ADALIMUMAB
     Indication: CROHN^S DISEASE
     Route: 065
     Dates: start: 2009, end: 2010
  2. OMEPRAZOLE. [Concomitant]
     Active Substance: OMEPRAZOLE
     Indication: GASTRIC ULCER

REACTIONS (4)
  - Crohn^s disease [Recovered/Resolved]
  - Crohn^s disease [Recovered/Resolved]
  - Crohn^s disease [Recovered/Resolved]
  - Enteritis [Not Recovered/Not Resolved]

NARRATIVE: CASE EVENT DATE: 2010
